FAERS Safety Report 9293596 (Version 6)
Quarter: 2016Q2

REPORT INFORMATION
  Report Type: Spontaneous
  Country: US (occurrence: US)
  Receive Date: 20130516
  Receipt Date: 20160531
  Transmission Date: 20160815
  Serious: Yes (Other)
  Sender: FDA-Public Use
  Company Number: US-009507513-1305USA009449

PATIENT
  Sex: Male

DRUGS (3)
  1. PROPECIA [Suspect]
     Active Substance: FINASTERIDE
     Indication: ANDROGENETIC ALOPECIA
     Dosage: 1 MG, UNKNOWN
     Route: 048
     Dates: start: 1999, end: 20050917
  2. PROSCAR [Suspect]
     Active Substance: FINASTERIDE
     Indication: ANDROGENETIC ALOPECIA
     Dosage: 5 MG, UNKNOWN
     Route: 048
     Dates: start: 20050908
  3. FINASTERIDE. [Suspect]
     Active Substance: FINASTERIDE
     Indication: ANDROGENETIC ALOPECIA
     Dosage: 1/5 OF 5MG TABLET DAILY
     Route: 048
     Dates: start: 20060622, end: 20070626

REACTIONS (20)
  - Anxiety [Unknown]
  - Angiopathy [Unknown]
  - Erectile dysfunction [Not Recovered/Not Resolved]
  - Drug ineffective [Unknown]
  - Back pain [Not Recovered/Not Resolved]
  - Penile operation [Recovered/Resolved]
  - Depression [Unknown]
  - Partner stress [Unknown]
  - Cyanopsia [Unknown]
  - Sexual dysfunction [Not Recovered/Not Resolved]
  - Peyronie^s disease [Not Recovered/Not Resolved]
  - Drug administration error [Unknown]
  - Sleep disorder [Unknown]
  - Headache [Unknown]
  - Intervertebral disc injury [Recovered/Resolved]
  - Spinal operation [Unknown]
  - Wrong technique in product usage process [Unknown]
  - Type 1 diabetes mellitus [Not Recovered/Not Resolved]
  - Circumcision [Unknown]
  - Glucose urine present [Unknown]

NARRATIVE: CASE EVENT DATE: 1999
